FAERS Safety Report 24525240 (Version 5)
Quarter: 2025Q2

REPORT INFORMATION
  Report Type: Spontaneous
  Country: US (occurrence: US)
  Receive Date: 20241019
  Receipt Date: 20250415
  Transmission Date: 20250716
  Serious: Yes (Hospitalization, Other)
  Sender: SANOFI AVENTIS
  Company Number: US-SA-2024SA300961

PATIENT
  Age: 72 Year
  Sex: Male
  Weight: 77.098 kg

DRUGS (27)
  1. DUPIXENT [Suspect]
     Active Substance: DUPILUMAB
     Indication: Asthma
     Route: 058
     Dates: start: 20231030, end: 20231030
  2. DUPIXENT [Suspect]
     Active Substance: DUPILUMAB
     Dosage: 300 MG, QOW
     Route: 058
     Dates: start: 202311, end: 20240917
  3. GLUCOSAMINE/CHONDROITIN [CHONDROITIN SULFATE;GLUCOSAMINE] [Concomitant]
  4. MAXEPA [DOCOSAHEXAENOIC ACID;EICOSAPENTAENOIC ACID] [Concomitant]
  5. SUPER MULTIPLE [Concomitant]
  6. SUDAFED [Concomitant]
     Active Substance: PSEUDOEPHEDRINE HYDROCHLORIDE
  7. MUCUS RELIEF ER [Concomitant]
     Active Substance: GUAIFENESIN
  8. CALCIUM [Concomitant]
     Active Substance: CALCIUM
  9. PROAIR HFA [Concomitant]
     Active Substance: ALBUTEROL SULFATE
     Indication: Wheezing
     Route: 055
     Dates: start: 20250218
  10. AUGMENTIN [Concomitant]
     Active Substance: AMOXICILLIN\CLAVULANATE POTASSIUM
     Dosage: 1 DF, BID
     Route: 048
     Dates: start: 20250225
  11. ASTELIN [Concomitant]
     Active Substance: AZELASTINE HYDROCHLORIDE
     Dosage: 2 DF, BID
     Dates: start: 20250107
  12. PULMICORT TURBUHALER [Concomitant]
     Active Substance: BUDESONIDE
     Dosage: UNK UNK, BID (TAKE 2 ML BY NEBULIZATION DAILY. ADD 2 ML TO NASAL SALINE IRRIGATION AND USE TWICE DAI
     Route: 055
     Dates: start: 20240307
  13. SYMBICORT [Concomitant]
     Active Substance: BUDESONIDE\FORMOTEROL FUMARATE DIHYDRATE
     Route: 055
     Dates: start: 20240416
  14. CIPRO [Concomitant]
     Active Substance: CIPROFLOXACIN HYDROCHLORIDE
     Indication: Diarrhoea infectious
     Dosage: 1 DF, BID
     Route: 048
     Dates: start: 20240224
  15. NEURONTIN [Concomitant]
     Active Substance: GABAPENTIN
     Dosage: 1 DF, TID
     Route: 048
     Dates: start: 20240710
  16. EMPAGLIFLOZIN\LINAGLIPTIN [Concomitant]
     Active Substance: EMPAGLIFLOZIN\LINAGLIPTIN
     Dosage: 1 DF, QD
     Route: 055
     Dates: start: 20240218
  17. DUONEB [Concomitant]
     Active Substance: ALBUTEROL SULFATE\IPRATROPIUM BROMIDE
     Indication: Dyspnoea
     Dosage: UNK UNK, Q6H (ROUTE: INHALE 3 ML INTO THE LUNGS EVERY 6 HOURS AS NEEDED (SHORTNESS OF BREATH). - INH
     Route: 055
     Dates: start: 20241012
  18. MEPOLIZUMAB [Concomitant]
     Active Substance: MEPOLIZUMAB
     Dosage: 300 MG, QM
     Route: 058
     Dates: start: 20241217
  19. MEPOLIZUMAB [Concomitant]
     Active Substance: MEPOLIZUMAB
     Dosage: UNK UNK, QM (- ROUTE: INJECT 3 ML INTO THE SKIN EVERY 28 DAYS)
     Route: 058
     Dates: start: 20250107
  20. MEPOLIZUMAB [Concomitant]
     Active Substance: MEPOLIZUMAB
     Dosage: 300 MG, QM
     Route: 058
     Dates: start: 20250331
  21. BACTROBAN [Concomitant]
     Active Substance: MUPIROCIN CALCIUM
     Dosage: UNK UNK, BID
     Dates: start: 20250107
  22. DELTASONE [Concomitant]
     Active Substance: PREDNISONE
     Dosage: 40 MG, QD
     Dates: start: 20250225
  23. DELTASONE [Concomitant]
     Active Substance: PREDNISONE
     Dosage: 20 MG, QD
     Dates: start: 20250225
  24. FLOMAX [Concomitant]
     Active Substance: TAMSULOSIN HYDROCHLORIDE
     Dosage: 1 DF, QD
     Dates: start: 20240731
  25. VIAGRA [Concomitant]
     Active Substance: SILDENAFIL CITRATE
     Indication: Erectile dysfunction
     Route: 048
     Dates: start: 20240731
  26. ATROVENT [Concomitant]
     Active Substance: IPRATROPIUM BROMIDE
     Dates: start: 20240703
  27. SINGULAIR [Concomitant]
     Active Substance: MONTELUKAST SODIUM
     Dosage: 1 DF, QD
     Route: 048
     Dates: start: 20250225

REACTIONS (3)
  - Eosinophilic pneumonia [Recovering/Resolving]
  - Pneumonia [Recovering/Resolving]
  - Hypereosinophilic syndrome [Recovering/Resolving]

NARRATIVE: CASE EVENT DATE: 20240701
